FAERS Safety Report 14418936 (Version 9)
Quarter: 2019Q2

REPORT INFORMATION
  Report Type: Report from Study
  Country: US (occurrence: US)
  Receive Date: 20180122
  Receipt Date: 20190529
  Transmission Date: 20190711
  Serious: Yes (Disabling, Other)
  Sender: FDA-Public Use
  Company Number: PHEH2018US002632

PATIENT
  Sex: Male

DRUGS (4)
  1. ILARIS [Suspect]
     Active Substance: CANAKINUMAB
     Dosage: 150 MG, EVERY 12 DAYS
     Route: 058
  2. ILARIS [Suspect]
     Active Substance: CANAKINUMAB
     Dosage: 150 MG, EVERY 12 DAYS
     Route: 058
  3. ILARIS [Suspect]
     Active Substance: CANAKINUMAB
     Dosage: 150 MG, EVERY 12 DAYS
     Route: 030
  4. ILARIS [Suspect]
     Active Substance: CANAKINUMAB
     Indication: STILL^S DISEASE
     Dosage: 300 MG, QMO
     Route: 058

REACTIONS (20)
  - Serum ferritin decreased [Unknown]
  - Heart rate increased [Unknown]
  - Nasopharyngitis [Unknown]
  - Disease recurrence [Unknown]
  - Incorrect route of product administration [Unknown]
  - Lymphadenopathy [Unknown]
  - Nausea [Unknown]
  - Arthralgia [Unknown]
  - Malaise [Unknown]
  - Oropharyngeal pain [Unknown]
  - Decreased appetite [Unknown]
  - Still^s disease [Unknown]
  - Pyrexia [Recovered/Resolved]
  - Laboratory test abnormal [Unknown]
  - Fatigue [Unknown]
  - Joint swelling [Unknown]
  - Balance disorder [Unknown]
  - Cough [Unknown]
  - Pain [Unknown]
  - Inappropriate schedule of product administration [Unknown]
